FAERS Safety Report 9853049 (Version 1)
Quarter: 2014Q1

REPORT INFORMATION
  Report Type: Spontaneous
  Country: US (occurrence: None)
  Receive Date: 20140127
  Receipt Date: 20140127
  Transmission Date: 20141002
  Serious: Yes (Other)
  Sender: FDA-Public Use
  Company Number: ANTARES-2014-00007

PATIENT
  Age: 50 Year
  Sex: 0

DRUGS (3)
  1. METHOTREXATE (METHOTREXATE) (UNKNOWN) [Suspect]
     Indication: PSORIASIS
  2. CYCLOSPORINE [Suspect]
     Indication: PSORIASIS
  3. FOLATE [Suspect]

REACTIONS (2)
  - Depression [None]
  - Hyperlipidaemia [None]
